FAERS Safety Report 25454975 (Version 1)
Quarter: 2025Q2

REPORT INFORMATION
  Report Type: Spontaneous
  Country: VN (occurrence: VN)
  Receive Date: 20250619
  Receipt Date: 20250619
  Transmission Date: 20250716
  Serious: Yes (Hospitalization, Other)
  Sender: ALKEM
  Company Number: VN-ALKEM LABORATORIES LIMITED-VN-ALKEM-2025-06295

PATIENT
  Age: 43 Year
  Sex: Female

DRUGS (1)
  1. AZATHIOPRINE [Suspect]
     Active Substance: AZATHIOPRINE
     Indication: Myasthenia gravis
     Route: 065

REACTIONS (1)
  - Gastrointestinal lymphoma [Unknown]
